FAERS Safety Report 6353334-8 (Version None)
Quarter: 2009Q3

REPORT INFORMATION
  Report Type: 
  Country: None (occurrence: None)
  Receive Date: 20090912
  Receipt Date: 20080722
  Transmission Date: 20100115
  Serious: No
  Sender: FDA-Public Use
  Company Number: US-BAUSCH-2008BL003202

PATIENT

DRUGS (1)
  1. TROPICAMIDE [Suspect]
     Indication: PREOPERATIVE CARE
     Route: 047
     Dates: start: 20080716, end: 20080716

REACTIONS (1)
  - DRUG INEFFECTIVE [None]
